FAERS Safety Report 7973288-8 (Version None)
Quarter: 2011Q4

REPORT INFORMATION
  Report Type: 
  Country: None (occurrence: None)
  Receive Date: 20111213
  Receipt Date: 20111212
  Transmission Date: 20120403
  Serious: Yes (Other)
  Sender: FDA-Public Use
  Company Number: PHHY2011DE48181

PATIENT
  Sex: Male

DRUGS (11)
  1. ASPIRIN [Concomitant]
     Dates: start: 20100201
  2. INSPRA [Concomitant]
     Dates: start: 20100201
  3. DIOVAN [Suspect]
     Dosage: 2 DF, QD
     Route: 048
     Dates: start: 20110501, end: 20110501
  4. CLOPIDOGREL BISULFATE [Concomitant]
     Dates: start: 20100201
  5. TORSEMIDE [Concomitant]
     Dates: start: 20100201
  6. PANTOPRAZOLE SODIUM [Concomitant]
     Dates: start: 20100201
  7. FOLIC ACID [Concomitant]
     Dates: start: 20100201
  8. FERRO-FOLGAMMA [Concomitant]
     Dates: start: 20100201
  9. SORTIS ^GOEDECKE^ [Concomitant]
     Dates: start: 20100201
  10. ATACAND [Concomitant]
     Dates: start: 20110501
  11. DIOVAN [Suspect]
     Indication: HYPERTENSION
     Dosage: 0.5 DF, QD
     Route: 048
     Dates: start: 20030101, end: 20110501

REACTIONS (6)
  - MYOCARDIAL INFARCTION [None]
  - HAEMOGLOBIN DECREASED [None]
  - DRUG INEFFECTIVE [None]
  - ANGIODYSPLASIA [None]
  - SMALL INTESTINAL HAEMORRHAGE [None]
  - IN-STENT CORONARY ARTERY RESTENOSIS [None]
